FAERS Safety Report 15104875 (Version 3)
Quarter: 2018Q4

REPORT INFORMATION
  Report Type: Spontaneous
  Country: ES (occurrence: ES)
  Receive Date: 20180703
  Receipt Date: 20181128
  Transmission Date: 20190204
  Serious: Yes (Life-Threatening, Other)
  Sender: FDA-Public Use
  Company Number: ES-ALLERGAN-1833341US

PATIENT
  Age: 46 Year
  Sex: Female

DRUGS (3)
  1. MESALAZINE UNK [Suspect]
     Active Substance: MESALAMINE
     Indication: PROCTITIS ULCERATIVE
     Dosage: 3 G, QD
     Route: 048
  2. MESALAZINE UNK [Suspect]
     Active Substance: MESALAMINE
     Indication: PROCTITIS ULCERATIVE
     Dosage: 1 G, QD
     Route: 054
     Dates: start: 201610
  3. MESALAZINE UNK [Suspect]
     Active Substance: MESALAMINE
     Dosage: 1 G, QD
     Route: 054
     Dates: start: 2016, end: 201610

REACTIONS (2)
  - Off label use [Unknown]
  - Stevens-Johnson syndrome [Recovered/Resolved]

NARRATIVE: CASE EVENT DATE: 2016
